FAERS Safety Report 13822860 (Version 2)
Quarter: 2017Q3

REPORT INFORMATION
  Report Type: Report from Study
  Country: US (occurrence: US)
  Receive Date: 20170801
  Receipt Date: 20170911
  Transmission Date: 20171127
  Serious: Yes (Other)
  Sender: FDA-Public Use
  Company Number: US-GILEAD-2017-0283959

PATIENT
  Age: 61 Year
  Sex: Male
  Weight: 78.91 kg

DRUGS (1)
  1. ELVITEGRAVIR/COBICISTAT/EMTRICITABINE/TENOFOVIR ALAFENAMIDE [Suspect]
     Active Substance: COBICISTAT\ELVITEGRAVIR\EMTRICITABINE\TENOFOVIR
     Indication: HIV INFECTION
     Dosage: 510 MG, UNK
     Route: 048
     Dates: start: 201703

REACTIONS (4)
  - Memory impairment [Unknown]
  - Transient ischaemic attack [Unknown]
  - Nervous system disorder [Unknown]
  - Cerebrovascular accident [Not Recovered/Not Resolved]
